FAERS Safety Report 8024402-X (Version None)
Quarter: 2012Q1

REPORT INFORMATION
  Report Type: 
  Country: None (occurrence: None)
  Receive Date: 20120105
  Receipt Date: 20120105
  Transmission Date: 20120608
  Serious: No
  Sender: FDA-Public Use
  Company Number: None

PATIENT

DRUGS (2)
  1. TRAMADOL HCL [Suspect]
     Indication: FATIGUE
     Dosage: 200 MG
     Route: 048
  2. TRAMADOL HCL [Suspect]
     Indication: FIBROMYALGIA
     Dosage: 200 MG
     Route: 048

REACTIONS (3)
  - DRUG INEFFECTIVE [None]
  - PAIN [None]
  - PRODUCT SUBSTITUTION ISSUE [None]
